FAERS Safety Report 9321700 (Version 2)
Quarter: 2013Q3

REPORT INFORMATION
  Report Type: Report from Study
  Country: US (occurrence: US)
  Receive Date: 20130531
  Receipt Date: 20130719
  Transmission Date: 20140515
  Serious: Yes (Other)
  Sender: FDA-Public Use
  Company Number: US-JNJFOC-20130518356

PATIENT
  Age: 47 Year
  Sex: Female
  Weight: 65.77 kg

DRUGS (11)
  1. REMICADE [Suspect]
     Indication: COLITIS ULCERATIVE
     Dosage: NOV OR DEC-2012 AT 5MG/KG BODY WEIGHT
     Route: 042
     Dates: start: 2012
  2. REMICADE [Suspect]
     Indication: COLITIS ULCERATIVE
     Route: 042
     Dates: start: 20130613
  3. MERCAPTOPURINE [Suspect]
     Indication: COLITIS ULCERATIVE
     Route: 065
     Dates: end: 2013
  4. MERCAPTOPURINE [Suspect]
     Indication: COLITIS ULCERATIVE
     Dosage: STARTED POSSIBLY IN 1992
     Route: 065
  5. MERCAPTOPURINE [Suspect]
     Indication: COLITIS ULCERATIVE
     Route: 065
     Dates: end: 2013
  6. PROTONIX [Concomitant]
     Indication: GASTROOESOPHAGEAL REFLUX DISEASE
     Route: 048
  7. GABAPENTIN [Concomitant]
     Indication: FIBROMYALGIA
     Dosage: STARTED POSSIBLY IN 2011
     Route: 048
     Dates: start: 2011
  8. CITALOPRAM [Concomitant]
     Indication: ANXIETY
     Dosage: STARTED POSSIBLY IN 2011
     Route: 048
  9. VITAMIN [Concomitant]
     Route: 048
  10. RANITIDINE [Concomitant]
     Indication: GASTROOESOPHAGEAL REFLUX DISEASE
     Dosage: STARTED POSSIBLY IN 2012
     Route: 065
  11. BIOTIN [Concomitant]
     Indication: ALOPECIA
     Route: 065
     Dates: start: 2011

REACTIONS (5)
  - Fungal infection [Unknown]
  - Hepatic enzyme increased [Recovered/Resolved]
  - Blood pressure [Unknown]
  - Herpes zoster [Recovered/Resolved]
  - Nausea [Unknown]
